FAERS Safety Report 11544370 (Version 1)
Quarter: 2015Q3

REPORT INFORMATION
  Report Type: Spontaneous
  Country: US (occurrence: None)
  Receive Date: 20150923
  Receipt Date: 20150923
  Transmission Date: 20151125
  Serious: Yes (Other)
  Sender: FDA-Public Use
  Company Number: None

PATIENT
  Age: 45 Year
  Sex: Female
  Weight: 86.18 kg

DRUGS (2)
  1. CIPRO [Suspect]
     Active Substance: CIPROFLOXACIN HYDROCHLORIDE
     Indication: SINUSITIS
     Dosage: TAKEN BY MOUTH
  2. PREDNISONE. [Suspect]
     Active Substance: PREDNISONE
     Indication: SINUSITIS
     Dosage: TAKEN BY MOUTH

REACTIONS (3)
  - Tendon rupture [None]
  - Cartilage injury [None]
  - Joint injury [None]

NARRATIVE: CASE EVENT DATE: 20150906
